FAERS Safety Report 6121377-5 (Version None)
Quarter: 2009Q1

REPORT INFORMATION
  Report Type: 
  Country: None (occurrence: None)
  Receive Date: 20090313
  Receipt Date: 20090303
  Transmission Date: 20090719
  Serious: No
  Sender: FDA-Public Use
  Company Number: 2009-192124-NL

PATIENT
  Sex: Male

DRUGS (4)
  1. ROCURONIUM BROMIDE [Suspect]
     Dates: start: 20081201, end: 20081201
  2. SUCCINYLCHOLINE CHLORIDE [Concomitant]
  3. MAGNESIUM SULFATE [Concomitant]
  4. FERROUS CITRATE [Concomitant]

REACTIONS (4)
  - CAESAREAN SECTION [None]
  - DRUG EXPOSURE DURING PREGNANCY [None]
  - NEONATAL RESPIRATORY DISTRESS SYNDROME [None]
  - PREMATURE BABY [None]
